FAERS Safety Report 8018030-X (Version None)
Quarter: 2012Q1

REPORT INFORMATION
  Report Type: 
  Country: None (occurrence: None)
  Receive Date: 20120103
  Receipt Date: 20111227
  Transmission Date: 20120608
  Serious: Yes (Other)
  Sender: FDA-Public Use
  Company Number: US-JNJFOC-20111211162

PATIENT
  Sex: Male
  Weight: 86.18 kg

DRUGS (13)
  1. REMICADE [Suspect]
     Indication: RHEUMATOID ARTHRITIS
     Route: 042
  2. ARAVA [Suspect]
     Indication: PRODUCT USED FOR UNKNOWN INDICATION
     Route: 065
  3. SULFASALAZINE [Suspect]
     Indication: RHEUMATOID ARTHRITIS
     Route: 065
     Dates: start: 20110201, end: 20110101
  4. VITAMIN B-12 [Concomitant]
     Route: 065
  5. VITAMIN B6 [Concomitant]
     Route: 065
  6. CALCIUM ACETATE [Concomitant]
     Route: 065
  7. FOLIC ACID [Concomitant]
     Route: 065
  8. VITAMIN D [Concomitant]
     Route: 065
  9. VITAMIN C + E [Concomitant]
     Route: 065
  10. MULTI-VITAMIN [Concomitant]
  11. FISH OIL [Concomitant]
     Route: 065
  12. ARAVA [Suspect]
     Route: 065
  13. IRON [Concomitant]
     Route: 065

REACTIONS (8)
  - HYPERTENSION [None]
  - ABDOMINAL DISCOMFORT [None]
  - GASTRIC DISORDER [None]
  - BLOOD CHOLESTEROL INCREASED [None]
  - PAIN [None]
  - LIMB DISCOMFORT [None]
  - LABORATORY TEST ABNORMAL [None]
  - BACK PAIN [None]
